FAERS Safety Report 17974474 (Version 4)
Quarter: 2020Q4

REPORT INFORMATION
  Report Type: Spontaneous
  Country: US (occurrence: US)
  Receive Date: 20200702
  Receipt Date: 20201002
  Transmission Date: 20210113
  Serious: No
  Sender: FDA-Public Use
  Company Number: US-PFIZER INC-2018217075

PATIENT
  Age: 78 Year
  Sex: Female
  Weight: 71 kg

DRUGS (17)
  1. MAGNESIUM CARBONATE [Concomitant]
     Active Substance: MAGNESIUM CARBONATE
     Dosage: UNK
  2. ASPIRIN [ACETYLSALICYLIC ACID] [Concomitant]
     Active Substance: ASPIRIN
     Dosage: 81 MG, 1X/DAY
     Route: 048
  3. METFORMIN HCL [Concomitant]
     Active Substance: METFORMIN HYDROCHLORIDE
     Dosage: 1 DF, 1X/DAY [1 TABLET WITH EVENING MEAL ]
     Route: 048
  4. ONE DAILY [ASCORBIC ACID;CYANOCOBALAMIN;ERGOCALCIFEROL;FOLIC ACID;NICO [Concomitant]
     Dosage: UNK (50+ TABLET)
     Route: 048
  5. PROBIOTIC [BIFIDOBACTERIUM LACTIS] [Concomitant]
     Active Substance: BIFIDOBACTERIUM ANIMALIS LACTIS
     Dosage: 1 DF, 2X/DAY
     Route: 048
  6. FISH OIL [Concomitant]
     Active Substance: FISH OIL
     Dosage: 1 DF, 1X/DAY
     Route: 048
  7. ACETAMINOPHEN. [Concomitant]
     Active Substance: ACETAMINOPHEN
     Dosage: 2 DF, AS NEEDED [500MG, 2 TABLETS EVERY 6 HRS]
     Route: 048
  8. CALCIUM CARBONATE. [Concomitant]
     Active Substance: CALCIUM CARBONATE
     Dosage: UNK
  9. LYRICA [Suspect]
     Active Substance: PREGABALIN
     Dosage: 250 MG, DAILY  (2 CAPSULE QAM 1 TAB MID DAY AND 2 TABS QPM)
     Route: 048
  10. OMEPRAZOLE. [Concomitant]
     Active Substance: OMEPRAZOLE
     Dosage: 1 DF, 1X/DAY
     Route: 048
  11. LEVOTHYROXINE SODIUM. [Concomitant]
     Active Substance: LEVOTHYROXINE SODIUM
     Dosage: 200 UG, 1X/DAY [1 TABLET ON AN EMPTY STOMACH IN THE MORNING]
     Route: 048
  12. LYRICA [Suspect]
     Active Substance: PREGABALIN
     Indication: NEUROPATHY PERIPHERAL
     Dosage: 50 MG (2 CAPSULES TWICE A DAY TITRATE UP AS INSTRUCTED 30 DAYS)
     Route: 048
  13. LYRICA [Suspect]
     Active Substance: PREGABALIN
     Dosage: 50 MG, 4X/DAY
     Route: 048
  14. HYDROCHLOROTHIAZIDE. [Concomitant]
     Active Substance: HYDROCHLOROTHIAZIDE
     Dosage: 1 DF, 1X/DAY [1 TABLET IN THE MORNING]
     Route: 048
  15. CINNAMON. [Concomitant]
     Active Substance: CINNAMON
     Dosage: 1 DF, UNK
     Route: 048
  16. GABAPENTIN. [Concomitant]
     Active Substance: GABAPENTIN
     Indication: NEUROPATHY PERIPHERAL
     Dosage: 2 DF, 4X/DAY [2 CAPSULES ORALLY FOUR-TIMES A DAY]
     Route: 048
  17. GABAPENTIN. [Concomitant]
     Active Substance: GABAPENTIN
     Dosage: 600 MG, 4X/DAY [300 MG 2 TABLETS 4 TIMES A DAY]

REACTIONS (3)
  - Cough [Unknown]
  - Off label use [Unknown]
  - Product use in unapproved indication [Unknown]

NARRATIVE: CASE EVENT DATE: 2020
